FAERS Safety Report 9856673 (Version 4)
Quarter: 2014Q4

REPORT INFORMATION
  Report Type: Spontaneous
  Country: US (occurrence: US)
  Receive Date: 20140130
  Receipt Date: 20141022
  Transmission Date: 20150529
  Serious: Yes (Other)
  Sender: FDA-Public Use
  Company Number: US-GLAXOSMITHKLINE-A1057675A

PATIENT
  Sex: Male

DRUGS (12)
  1. ADVAIR DISKUS [Suspect]
     Active Substance: FLUTICASONE PROPIONATE\SALMETEROL XINAFOATE
     Indication: CHRONIC OBSTRUCTIVE PULMONARY DISEASE
     Dosage: 1 PUFF(S), BID
     Route: 055
     Dates: start: 201201
  2. CLARITIN [Concomitant]
     Active Substance: LORATADINE
  3. ALBUTEROL. [Concomitant]
     Active Substance: ALBUTEROL
  4. ADVAIR DISKUS [Suspect]
     Active Substance: FLUTICASONE PROPIONATE\SALMETEROL XINAFOATE
     Indication: BRONCHITIS CHRONIC
     Dosage: UNK
  5. METOPROLOL [Concomitant]
     Active Substance: METOPROLOL
  6. ZYRTEC [Concomitant]
     Active Substance: CETIRIZINE HYDROCHLORIDE
  7. ASPIRIN. [Concomitant]
     Active Substance: ASPIRIN
  8. MUCINEX [Concomitant]
     Active Substance: GUAIFENESIN
  9. OMEPRAZOLE. [Concomitant]
     Active Substance: OMEPRAZOLE
  10. LOSARTAN [Concomitant]
     Active Substance: LOSARTAN
  11. FLUNISOLIDE. [Concomitant]
     Active Substance: FLUNISOLIDE
  12. NASAL SPRAY [Concomitant]
     Active Substance: UNSPECIFIED INGREDIENT

REACTIONS (17)
  - Respiratory tract infection [Unknown]
  - Lower respiratory tract infection viral [Not Recovered/Not Resolved]
  - Vertigo [Not Recovered/Not Resolved]
  - Productive cough [Not Recovered/Not Resolved]
  - Off label use [Not Recovered/Not Resolved]
  - Suffocation feeling [Unknown]
  - Lung infection [Not Recovered/Not Resolved]
  - Dyspnoea [Unknown]
  - Fatigue [Not Recovered/Not Resolved]
  - Blood pressure increased [Not Recovered/Not Resolved]
  - Dizziness [Not Recovered/Not Resolved]
  - Nervousness [Unknown]
  - Anxiety [Unknown]
  - Headache [Not Recovered/Not Resolved]
  - Hypersomnia [Not Recovered/Not Resolved]
  - Drug ineffective [Not Recovered/Not Resolved]
  - Chest discomfort [Unknown]
